FAERS Safety Report 8742827 (Version 2)
Quarter: 2012Q4

REPORT INFORMATION
  Report Type: Report from Study
  Country: CA (occurrence: CA)
  Receive Date: 20120824
  Receipt Date: 20121120
  Transmission Date: 20130627
  Serious: Yes (Congenital Anomaly, Other)
  Sender: FDA-Public Use
  Company Number: CA-ABBOTT-12P-028-0969346-00

PATIENT

DRUGS (1)
  1. HUMIRA 40 MG/0.8 ML PEN [Suspect]
     Indication: EXPOSURE VIA FATHER
     Route: 050

REACTIONS (7)
  - Cleft lip and palate [Unknown]
  - Congenital hand malformation [Unknown]
  - Dysmorphism [Unknown]
  - Talipes [Unknown]
  - Patent ductus arteriosus [Unknown]
  - Premature baby [Unknown]
  - Exposure via father [Unknown]
